FAERS Safety Report 13690266 (Version 1)
Quarter: 2017Q2

REPORT INFORMATION
  Report Type: Spontaneous
  Country: FR (occurrence: FR)
  Receive Date: 20170626
  Receipt Date: 20170626
  Transmission Date: 20170830
  Serious: Yes (Hospitalization)
  Sender: FDA-Public Use
  Company Number: FR-PFIZER INC-2017272076

PATIENT
  Age: 55 Year
  Sex: Male

DRUGS (5)
  1. ADVIL [Suspect]
     Active Substance: IBUPROFEN
     Indication: CHILLS
     Dosage: UNK
     Route: 048
     Dates: start: 20170422, end: 20170424
  2. ADVIL [Suspect]
     Active Substance: IBUPROFEN
     Indication: PYREXIA
  3. LOSARDEX [Concomitant]
     Active Substance: LOSARTAN POTASSIUM
     Dosage: 50 MG, 1X/DAY
  4. ADVIL [Suspect]
     Active Substance: IBUPROFEN
     Indication: DISCOMFORT
  5. SIMVASTATIN. [Concomitant]
     Active Substance: SIMVASTATIN
     Dosage: 20 MG, DAILY

REACTIONS (1)
  - Erysipelas [Recovered/Resolved]

NARRATIVE: CASE EVENT DATE: 20170424
